FAERS Safety Report 8993597 (Version 1)
Quarter: 2013Q1

REPORT INFORMATION
  Report Type: Spontaneous
  Country: GB (occurrence: GB)
  Receive Date: 20130102
  Receipt Date: 20130102
  Transmission Date: 20140127
  Serious: Yes (Other)
  Sender: FDA-Public Use
  Company Number: GB-ROCHE-1174875

PATIENT
  Age: 22 Year
  Sex: Male
  Weight: 80 kg

DRUGS (8)
  1. ACTILYSE [Suspect]
     Indication: SUBCLAVIAN VEIN THROMBOSIS
     Dosage: 8MG OVER 1 HR THEN 24MG/HR
     Route: 042
     Dates: start: 19930102
  2. ACTILYSE [Suspect]
     Dosage: 16MG/HR
     Route: 042
     Dates: start: 19930309
  3. ACTILYSE [Suspect]
     Dosage: 16MG/HR
     Route: 042
     Dates: start: 19930405
  4. ACTILYSE [Suspect]
     Route: 042
     Dates: start: 19930412, end: 19930412
  5. FLUCLOXACILLIN [Concomitant]
     Indication: INFECTION
     Route: 042
     Dates: start: 19930402
  6. GENTAMICIN [Concomitant]
     Indication: INFECTION
     Route: 042
     Dates: start: 19930402
  7. FUSIDIC ACID [Concomitant]
     Indication: INFECTION
     Route: 048
     Dates: start: 19930413
  8. HEPARIN [Concomitant]
     Indication: SUBCLAVIAN VEIN THROMBOSIS
     Dosage: 20 - 3000 U
     Route: 042
     Dates: start: 19930402

REACTIONS (5)
  - Malaise [Recovered/Resolved]
  - Chest discomfort [Recovered/Resolved]
  - Flushing [Recovered/Resolved]
  - Tachycardia [Recovered/Resolved]
  - Hypertension [Recovered/Resolved]
